FAERS Safety Report 8592323-X (Version None)
Quarter: 2012Q3

REPORT INFORMATION
  Report Type: 
  Country: None (occurrence: None)
  Receive Date: 20120814
  Receipt Date: 20120807
  Transmission Date: 20120928
  Serious: Yes (Other)
  Sender: FDA-Public Use
  Company Number: CA-JNJFOC-20120803716

PATIENT
  Sex: Female
  Weight: 84 kg

DRUGS (2)
  1. METHOTREXATE [Concomitant]
     Dosage: WEEKLY
     Route: 058
  2. REMICADE [Suspect]
     Indication: RHEUMATOID ARTHRITIS
     Dosage: INFLIXIMAB INITIATED MORE THAN 5 YEARS FROM THE TIME OF THIS REPORT
     Route: 042

REACTIONS (1)
  - AORTIC ANEURYSM [None]
